FAERS Safety Report 24896119 (Version 7)
Quarter: 2025Q1

REPORT INFORMATION
  Report Type: Spontaneous
  Country: CR (occurrence: CR)
  Receive Date: 20250128
  Receipt Date: 20250327
  Transmission Date: 20250409
  Serious: No
  Sender: PFIZER
  Company Number: CR-PFIZER INC-PV202500010528

PATIENT
  Age: 41 Year
  Sex: Female

DRUGS (1)
  1. ENBREL [Suspect]
     Active Substance: ETANERCEPT
     Indication: Rheumatic disorder
     Dosage: 50 MG, WEEKLY
     Route: 058
     Dates: start: 20240612

REACTIONS (13)
  - Device mechanical issue [Unknown]
  - Device difficult to use [Unknown]
  - Device physical property issue [Unknown]
  - Injection site pain [Unknown]
  - Injection site urticaria [Unknown]
  - Injection site inflammation [Unknown]
  - Injection site pruritus [Unknown]
  - Injection site erythema [Unknown]
  - Injection site warmth [Unknown]
  - Injection site hypersensitivity [Recovered/Resolved]
  - Nasopharyngitis [Unknown]
  - Hypersensitivity [Unknown]
  - Sensitivity to weather change [Unknown]

NARRATIVE: CASE EVENT DATE: 20240101
